FAERS Safety Report 12942885 (Version 1)
Quarter: 2016Q4

REPORT INFORMATION
  Report Type: Spontaneous
  Country: US (occurrence: US)
  Receive Date: 20161115
  Receipt Date: 20161115
  Transmission Date: 20170207
  Serious: No
  Sender: FDA-Public Use
  Company Number: US-BAYER-2016-218350

PATIENT
  Age: 63 Year
  Sex: Female
  Weight: 58.96 kg

DRUGS (1)
  1. ALEVE [Suspect]
     Active Substance: NAPROXEN SODIUM
     Indication: TENDONITIS
     Dosage: 2 DF, QD
     Route: 048
     Dates: start: 2014

REACTIONS (1)
  - Product use issue [None]
